FAERS Safety Report 7470942-1 (Version None)
Quarter: 2011Q2

REPORT INFORMATION
  Report Type: 
  Country: None (occurrence: None)
  Receive Date: 20110510
  Receipt Date: 20110505
  Transmission Date: 20111010
  Serious: No
  Sender: FDA-Public Use
  Company Number: US-PFIZER INC-2009162142

PATIENT
  Sex: Female
  Weight: 63.5 kg

DRUGS (2)
  1. LYRICA [Suspect]
     Indication: FIBROMYALGIA
     Dosage: 75 MG, 2 OR 3X/DAY
     Dates: start: 20080101
  2. ERYTHROMYCIN [Suspect]
     Dosage: UNK

REACTIONS (6)
  - HYPERSENSITIVITY [None]
  - DISTURBANCE IN ATTENTION [None]
  - SEDATION [None]
  - DRUG INEFFECTIVE [None]
  - LIMB INJURY [None]
  - SOMNOLENCE [None]
